FAERS Safety Report 6080446-9 (Version None)
Quarter: 2009Q1

REPORT INFORMATION
  Report Type: 
  Country: None (occurrence: None)
  Receive Date: 20090217
  Receipt Date: 20090210
  Transmission Date: 20090719
  Serious: Yes (Other)
  Sender: FDA-Public Use
  Company Number: PHEH2009US01572

PATIENT
  Sex: Female

DRUGS (1)
  1. RECLAST [Suspect]
     Dosage: UNK
     Dates: start: 20081218, end: 20081218

REACTIONS (4)
  - ARTHRALGIA [None]
  - ARTHRITIS [None]
  - MUSCULOSKELETAL CHEST PAIN [None]
  - MYALGIA [None]
